FAERS Safety Report 8901938 (Version 1)
Quarter: 2012Q4

REPORT INFORMATION
  Report Type: Spontaneous
  Country: US (occurrence: None)
  Receive Date: 20121109
  Receipt Date: 20121109
  Transmission Date: 20130627
  Serious: Yes (Other)
  Sender: FDA-Public Use
  Company Number: None

PATIENT
  Age: 7 Year
  Sex: Female
  Weight: 19.05 kg

DRUGS (5)
  1. INTUNIV [Suspect]
     Indication: ADHD
     Dosage: 1/day for 7 days
     Route: 048
     Dates: start: 20121017, end: 20121106
  2. INTUNIV [Suspect]
     Indication: OBSESSIVE-COMPULSIVE DISORDER
     Dosage: 1/day for 7 days
     Route: 048
     Dates: start: 20121017, end: 20121106
  3. INTUNIV [Suspect]
     Indication: ANXIETY
     Dosage: 1/day for 7 days
     Route: 048
     Dates: start: 20121017, end: 20121106
  4. INTUNIV [Suspect]
     Indication: TIC
     Dosage: 1/day for 7 days
     Route: 048
     Dates: start: 20121017, end: 20121106
  5. INTUNIV [Suspect]
     Dosage: 1/day for 14 days
     Route: 048

REACTIONS (7)
  - Muscle twitching [None]
  - Fatigue [None]
  - Feeling hot [None]
  - Vision blurred [None]
  - Insomnia [None]
  - Abnormal behaviour [None]
  - Fear [None]
